FAERS Safety Report 7124638 (Version 11)
Quarter: 2012Q4

REPORT INFORMATION
  Report Type: Report from Study
  Country: DE (occurrence: DE)
  Receive Date: 20090922
  Receipt Date: 20121106
  Transmission Date: 20130627
  Serious: Yes (Hospitalization, Other)
  Sender: FDA-Public Use
  Company Number: DE-BRISTOL-MYERS SQUIBB COMPANY-14744346

PATIENT
  Age: 45 Year
  Sex: Male
  Weight: 74 kg

DRUGS (11)
  1. CISPLATIN [Suspect]
     Indication: NON-SMALL CELL LUNG CANCER
     Dosage: 29Jun09-Ong .22Jun09-02Oct09.468 days
Last dose:25Sep09-2Oct09
Drug taken off 27Oct10
     Route: 065
     Dates: start: 20090622, end: 20091002
  2. ETOPOSIDE [Suspect]
     Indication: NON-SMALL CELL LUNG CANCER
     Dosage: 24Jul09 22Jun09-29Sep09.100days
also on 26Jun09-ong.Last dose 29Sep09
Drug taken off 27Oct10
     Route: 065
     Dates: start: 20090622, end: 20090929
  3. OSMOFUNDIN [Concomitant]
     Dates: start: 20090904, end: 20090904
  4. FORTECORTIN [Concomitant]
  5. RANITIC [Concomitant]
     Dates: start: 20090904, end: 20090904
  6. EMEND [Concomitant]
     Dates: start: 20090904, end: 20090904
  7. TEPILTA [Concomitant]
     Dates: start: 20090629, end: 20090804
  8. FRAXIPARINE [Concomitant]
     Dates: start: 20090625, end: 20090708
  9. OLICLINOMEL [Concomitant]
     Dates: start: 20090803
  10. PANTOZOL [Concomitant]
     Dates: start: 20090623
  11. BISOPROLOL [Concomitant]
     Dates: start: 19890101, end: 20090803

REACTIONS (7)
  - Thrombophlebitis [Recovered/Resolved]
  - Oesophagitis [Recovered/Resolved]
  - Leukopenia [Recovered/Resolved]
  - Neutropenia [Recovered/Resolved]
  - Laryngitis [Recovered/Resolved]
  - Dysphagia [Recovered/Resolved]
  - Nausea [Recovered/Resolved]
